FAERS Safety Report 4319515-X (Version None)
Quarter: 2004Q1

REPORT INFORMATION
  Report Type: 
  Country: None (occurrence: None)
  Receive Date: 20040315
  Receipt Date: 20040227
  Transmission Date: 20041129
  Serious: Yes (Hospitalization)
  Sender: FDA-Public Use
  Company Number: S04-USA-01057-01

PATIENT
  Age: 59 Year
  Sex: Female

DRUGS (3)
  1. THYROID TAB [Suspect]
     Indication: HYPOTHYROIDISM
     Dosage: 7.5 MG QHS PO
     Route: 048
     Dates: start: 20030701, end: 20040223
  2. THYROID TAB [Suspect]
     Indication: HYPOTHYROIDISM
     Dosage: 15 MG QAM PO
     Route: 048
     Dates: start: 20030701, end: 20040223
  3. ACTONEL [Concomitant]

REACTIONS (7)
  - BLOOD GLUCOSE INCREASED [None]
  - BRUXISM [None]
  - CHEST PAIN [None]
  - DIZZINESS [None]
  - FOOT FRACTURE [None]
  - HYPERHIDROSIS [None]
  - SALIVARY GLAND DISORDER [None]
